FAERS Safety Report 13189585 (Version 1)
Quarter: 2017Q1

REPORT INFORMATION
  Report Type: Spontaneous
  Country: US (occurrence: US)
  Receive Date: 20170206
  Receipt Date: 20170206
  Transmission Date: 20170428
  Serious: No
  Sender: FDA-Public Use
  Company Number: US-DSJP-DSU-2016-114113

PATIENT
  Sex: Female

DRUGS (18)
  1. AMOXICILLIN. [Concomitant]
     Active Substance: AMOXICILLIN
     Indication: DENTAL CARE
     Dosage: 3000MG (BEFORE DENTAL WORK) AND 200 MG 6 HRS AFTER DENTAL WORK AND 2000MG 6HRS (AFTER) AS NEEDED
  2. ASPIRIN                            /00002701/ [Concomitant]
     Active Substance: ASPIRIN
     Indication: CARDIAC DISORDER
     Dosage: UNK, QD (MORNING)
  3. LASIX [Concomitant]
     Active Substance: FUROSEMIDE
     Indication: RENAL DISORDER
     Dosage: 40 MG, AS NEEDED (AM)
  4. LYRICA [Concomitant]
     Active Substance: PREGABALIN
     Indication: PAIN
     Dosage: 50 MG, QID (AM/PM)
  5. SIMVASTATIN. [Concomitant]
     Active Substance: SIMVASTATIN
     Indication: BLOOD CHOLESTEROL ABNORMAL
     Dosage: 20 MG, QD (EVENINGS)
  6. VITAMIN C [Concomitant]
     Active Substance: ASCORBIC ACID
     Indication: URINARY TRACT INFECTION
     Dosage: 1000 MG, QD (PM)
  7. GABAPENTIN. [Concomitant]
     Active Substance: GABAPENTIN
     Indication: PAIN
     Dosage: 300 MG, QID (AM/PM)
  8. MULTI VITAMIN [Concomitant]
     Active Substance: VITAMINS
     Indication: VITAMIN SUPPLEMENTATION
     Dosage: UNK, QD (PM)
  9. PHOS-FLUR                          /00168201/ [Concomitant]
     Indication: PRODUCT USED FOR UNKNOWN INDICATION
     Dosage: UNK, QD (PM)
  10. CALCIUM + VIT D [Concomitant]
     Active Substance: CALCIUM\VITAMIN D
     Indication: BONE LOSS
     Dosage: 1200 MG, QD (PM)
  11. EVOXAC [Suspect]
     Active Substance: CEVIMELINE HYDROCHLORIDE
     Indication: PRODUCT USED FOR UNKNOWN INDICATION
     Dosage: UNK
  12. EVISTA [Concomitant]
     Active Substance: RALOXIFENE HYDROCHLORIDE
     Indication: BONE LOSS
     Dosage: 60 MG, BID (AM)
  13. METHENAMINE HIPPURATE. [Concomitant]
     Active Substance: METHENAMINE HIPPURATE
     Indication: URINARY TRACT INFECTION
     Dosage: 1 GM, QD (PM)
  14. OXYCODONE [Concomitant]
     Active Substance: OXYCODONE
     Indication: PAIN
     Dosage: 10 MG, TID (ONE AM, ONE MID DAY, ONE AT BED TIME)
  15. RAPAMUNE [Concomitant]
     Active Substance: SIROLIMUS
     Indication: RENAL TRANSPLANT
     Dosage: 1 MG, QD (MORNINGS)
  16. K-DUR [Concomitant]
     Active Substance: POTASSIUM CHLORIDE
     Indication: ELECTROLYTE SUBSTITUTION THERAPY
     Dosage: 8 MEQ, AS NEEDED (AM)
  17. PROBIOTIC                          /06395501/ [Concomitant]
     Active Substance: BIFIDOBACTERIUM ANIMALIS SUBSP. LACTIS
     Indication: ABDOMINAL DISCOMFORT
     Dosage: 1.5 MILLIOM PER PILL, BID (PM)
  18. PREDNISONE. [Concomitant]
     Active Substance: PREDNISONE
     Indication: RENAL TRANSPLANT
     Dosage: 5 MG, QOD (AM)

REACTIONS (1)
  - Drug hypersensitivity [Unknown]
